FAERS Safety Report 10735881 (Version 1)
Quarter: 2015Q1

REPORT INFORMATION
  Report Type: Spontaneous
  Country: US (occurrence: US)
  Receive Date: 20150126
  Receipt Date: 20150126
  Transmission Date: 20150721
  Serious: Yes (Other)
  Sender: FDA-Public Use
  Company Number: US-RB-072276-15

PATIENT
  Age: 44 Year
  Sex: Male

DRUGS (1)
  1. DELSYM NIGHT TIME COUGH AND COLD [Suspect]
     Active Substance: DIPHENHYDRAMINE HYDROCHLORIDE\PHENYLEPHRINE HYDROCHLORIDE
     Indication: PRODUCT USED FOR UNKNOWN INDICATION
     Dosage: TOOK TOTAL 3 DOSES TAKING1 TIME EACH ON 11-JAN-2015, 12-JAN-2015 AND LAST TOOK ON 13-JAN-2015 AT 3AM
     Route: 065
     Dates: start: 20150111

REACTIONS (5)
  - Pain [Recovered/Resolved]
  - Abdominal pain lower [Recovered/Resolved]
  - Insomnia [Recovering/Resolving]
  - Tachyphrenia [Unknown]
  - Hepatitis [Not Recovered/Not Resolved]

NARRATIVE: CASE EVENT DATE: 20150111
